FAERS Safety Report 8968310 (Version 1)
Quarter: 2012Q4

REPORT INFORMATION
  Report Type: 
  Country: US (occurrence: US)
  Receive Date: 20121218
  Receipt Date: 20121218
  Transmission Date: 20130627
  Serious: Yes (Disabling, Other)
  Sender: FDA-Public Use
  Company Number: US-PAR PHARMACEUTICAL, INC-2012SCPR004778

PATIENT

DRUGS (1)
  1. METOCLOPRAMIDE [Suspect]
     Indication: PRODUCT USED FOR UNKNOWN INDICATION
     Dosage: UNK, Unknown
     Route: 065
     Dates: start: 200609, end: 201012

REACTIONS (12)
  - Incorrect drug administration duration [Unknown]
  - Injury [Unknown]
  - Nervous system disorder [Unknown]
  - Extrapyramidal disorder [Unknown]
  - Restless legs syndrome [Unknown]
  - Tremor [Unknown]
  - Emotional distress [Unknown]
  - Pain [Unknown]
  - Anxiety [Unknown]
  - Anhedonia [Unknown]
  - Activities of daily living impaired [Unknown]
  - Ill-defined disorder [Unknown]
